FAERS Safety Report 11104400 (Version 1)
Quarter: 2015Q2

REPORT INFORMATION
  Report Type: Spontaneous
  Country: JP (occurrence: JP)
  Receive Date: 20150511
  Receipt Date: 20150511
  Transmission Date: 20150821
  Serious: Yes (Life-Threatening, Hospitalization, Other)
  Sender: FDA-Public Use
  Company Number: JP-SANOFI-AVENTIS-2013SA086226

PATIENT
  Age: 69 Year
  Sex: Male
  Weight: 64 kg

DRUGS (19)
  1. ELPLAT [Suspect]
     Active Substance: OXALIPLATIN
     Indication: COLON CANCER
     Route: 041
     Dates: start: 20130422, end: 20130422
  2. ELPLAT [Suspect]
     Active Substance: OXALIPLATIN
     Indication: COLON CANCER
     Route: 041
     Dates: start: 20130624, end: 20130624
  3. ELPLAT [Suspect]
     Active Substance: OXALIPLATIN
     Indication: COLON CANCER
     Route: 041
     Dates: start: 20130408, end: 20130408
  4. AVASTIN [Concomitant]
     Active Substance: BEVACIZUMAB
     Dates: start: 201304
  5. KYTRIL [Concomitant]
     Active Substance: GRANISETRON HYDROCHLORIDE
     Indication: PREMEDICATION
     Dates: start: 20130408, end: 20130708
  6. 5-FU [Concomitant]
     Active Substance: FLUOROURACIL
     Dosage: 356.7 MG/M2 BOLUS THEN 3900 MG/BODY/D1-2 (2318.7 MG/M2/D1-2) AS CONTINUOUS INFUSION
     Dates: start: 20130408, end: 20130624
  7. ELPLAT [Suspect]
     Active Substance: OXALIPLATIN
     Indication: COLON CANCER
     Route: 041
     Dates: start: 20130527, end: 20130527
  8. CALCIUM LEVOFOLINATE [Concomitant]
     Active Substance: LEVOLEUCOVORIN CALCIUM
     Dates: start: 20130408, end: 20130708
  9. LEUCOVORIN [Concomitant]
     Active Substance: LEUCOVORIN
     Dates: start: 201304
  10. ELPLAT [Suspect]
     Active Substance: OXALIPLATIN
     Indication: COLON CANCER
     Route: 041
     Dates: start: 20130610, end: 20130610
  11. CALCIUM LEVOFOLINATE [Concomitant]
     Active Substance: LEVOLEUCOVORIN CALCIUM
     Dosage: 336.4 MG/BODY
     Dates: start: 201304
  12. DECADRON [Concomitant]
     Active Substance: DEXAMETHASONE
     Indication: PREMEDICATION
     Dates: start: 20130408, end: 20130708
  13. ELPLAT [Suspect]
     Active Substance: OXALIPLATIN
     Indication: COLON CANCER
     Route: 041
     Dates: start: 201304, end: 201304
  14. ELPLAT [Suspect]
     Active Substance: OXALIPLATIN
     Indication: COLON CANCER
     Route: 041
     Dates: start: 20130708, end: 20130708
  15. 5-FU [Concomitant]
     Active Substance: FLUOROURACIL
     Dosage: 672.8 MG/BODY, BOLUS
     Dates: start: 201304
  16. AVASTIN [Concomitant]
     Active Substance: BEVACIZUMAB
     Dosage: DOSE: 300 MG/BODY
     Dates: start: 20130408, end: 20130708
  17. ELPLAT [Suspect]
     Active Substance: OXALIPLATIN
     Indication: COLON CANCER
     Route: 041
     Dates: start: 20130513, end: 20130513
  18. 5-FU [Concomitant]
     Active Substance: FLUOROURACIL
     Dosage: 4036.8 MG/BODY/DAY 1-2, CONTINUOUS INFUSION
     Dates: start: 201304
  19. LEUCOVORIN [Concomitant]
     Active Substance: LEUCOVORIN
     Dates: start: 20130408, end: 20130708

REACTIONS (3)
  - Anaphylactic shock [Recovered/Resolved]
  - Drug hypersensitivity [Recovered/Resolved]
  - Cardio-respiratory arrest [Recovered/Resolved]

NARRATIVE: CASE EVENT DATE: 20130708
